FAERS Safety Report 17423328 (Version 2)
Quarter: 2020Q1

REPORT INFORMATION
  Report Type: Spontaneous
  Country: AU (occurrence: AU)
  Receive Date: 20200217
  Receipt Date: 20200228
  Transmission Date: 20200409
  Serious: Yes (Death, Life-Threatening, Other)
  Sender: FDA-Public Use
  Company Number: AU-AMGEN-AUSSP2020024335

PATIENT

DRUGS (4)
  1. NEULASTA [Suspect]
     Active Substance: PEGFILGRASTIM
     Indication: PRODUCT USED FOR UNKNOWN INDICATION
     Dosage: 6 MILLIGRAM, CYCLICAL (DAY 6)
     Route: 065
  2. ETOPOSIDE. [Concomitant]
     Active Substance: ETOPOSIDE
     Indication: GERM CELL CANCER METASTATIC
     Dosage: 100 MILLIGRAM/SQ. METER, CYCLICAL (DAY 1 TO 5)
     Route: 042
  3. CISPLATIN. [Concomitant]
     Active Substance: CISPLATIN
     Indication: GERM CELL CANCER METASTATIC
     Dosage: 20 MILLIGRAM/SQ. METER, CYCLICAL (DAYS 1 TO 5)
     Route: 042
  4. BLEOMYCIN [Concomitant]
     Active Substance: BLEOMYCIN SULFATE
     Indication: GERM CELL CANCER METASTATIC
     Dosage: 30 MILLIGRAM, QWK
     Route: 042

REACTIONS (22)
  - Pulmonary haemorrhage [Unknown]
  - Infection [Unknown]
  - Deafness [Unknown]
  - Hypomagnesaemia [Unknown]
  - Lung diffusion disorder [Unknown]
  - Disease progression [Fatal]
  - Pain [Unknown]
  - Hypocalcaemia [Unknown]
  - Wound infection [Unknown]
  - Tinnitus [Unknown]
  - Subcutaneous abscess [Unknown]
  - Anaemia [Unknown]
  - Febrile neutropenia [Unknown]
  - Deep vein thrombosis [Unknown]
  - Thrombocytopenia [Unknown]
  - Off label use [Unknown]
  - Dehydration [Unknown]
  - Ventricular enlargement [Unknown]
  - Neutropenia [Unknown]
  - Nephropathy toxic [Unknown]
  - Neurotoxicity [Unknown]
  - Adverse event [Unknown]
